FAERS Safety Report 6967222-7 (Version None)
Quarter: 2010Q3

REPORT INFORMATION
  Report Type: 
  Country: None (occurrence: None)
  Receive Date: 20100907
  Receipt Date: 20100901
  Transmission Date: 20110219
  Serious: Yes (Other)
  Sender: FDA-Public Use
  Company Number: ES-WYE-G06610710

PATIENT
  Age: 48 Year
  Sex: Male

DRUGS (8)
  1. TAZOCEL [Suspect]
     Indication: POSTOPERATIVE WOUND INFECTION
     Route: 042
     Dates: start: 20100503, end: 20100521
  2. ASPIRIN [Concomitant]
     Route: 048
     Dates: start: 20100503
  3. METAMIZOLE [Suspect]
     Indication: PAIN
     Route: 042
     Dates: start: 20100503, end: 20100521
  4. ATORVASTATIN [Concomitant]
     Indication: HYPERLIPIDAEMIA
     Route: 048
     Dates: start: 20100503
  5. METFORMIN [Concomitant]
     Indication: TYPE 2 DIABETES MELLITUS
     Route: 048
     Dates: start: 20050101
  6. PREGABALIN [Concomitant]
     Route: 048
     Dates: start: 20100311
  7. HUMULINA [Concomitant]
     Indication: TYPE 2 DIABETES MELLITUS
     Route: 058
     Dates: start: 20050101
  8. BEMIPARIN SODIUM [Concomitant]
     Route: 058
     Dates: start: 20100503, end: 20100526

REACTIONS (2)
  - HEPATOTOXICITY [None]
  - NEUTROPENIA [None]
